FAERS Safety Report 24538409 (Version 1)
Quarter: 2024Q4

REPORT INFORMATION
  Report Type: Spontaneous
  Country: RO (occurrence: RO)
  Receive Date: 20241023
  Receipt Date: 20241023
  Transmission Date: 20250115
  Serious: Yes (Other)
  Sender: ACCORD
  Company Number: RO-EMA-DD-20241001-7482829-152644

PATIENT
  Age: 81 Year
  Sex: Female

DRUGS (2)
  1. FULVESTRANT [Suspect]
     Active Substance: FULVESTRANT
     Indication: Disease progression
     Dates: start: 202304
  2. PALBOCICLIB [Suspect]
     Active Substance: PALBOCICLIB
     Indication: Disease progression
     Dates: start: 202304

REACTIONS (6)
  - Hepatic cytolysis [Unknown]
  - Blood glucose abnormal [Unknown]
  - Thrombocytopenia [Unknown]
  - Fatigue [Unknown]
  - Anaemia [Unknown]
  - Leukopenia [Unknown]
